FAERS Safety Report 15292786 (Version 1)
Quarter: 2018Q3

REPORT INFORMATION
  Report Type: Spontaneous
  Country: DE (occurrence: DE)
  Receive Date: 20180819
  Receipt Date: 20180819
  Transmission Date: 20181010
  Serious: Yes (Hospitalization, Other)
  Sender: FDA-Public Use
  Company Number: DE-SHIRE-DE201831542

PATIENT

DRUGS (19)
  1. PREDNISOLONE. [Suspect]
     Active Substance: PREDNISOLONE
     Indication: PYLORIC STENOSIS
  2. FOLSAN [Concomitant]
     Active Substance: FOLIC ACID
     Indication: FOLATE DEFICIENCY
  3. AZATHIOPRINE. [Suspect]
     Active Substance: AZATHIOPRINE
     Indication: CROHN^S DISEASE
     Dosage: 100 MG, 1X/DAY:QD (DOSAGE FORM: UNSPECIFIED)
     Route: 065
  4. REMICADE [Suspect]
     Active Substance: INFLIXIMAB
     Dosage: 300 MG, UNK (DOSAGE FORM: LYOPHILIZED POWDER)
     Route: 042
     Dates: start: 20160401
  5. VITAMIN D3 [Concomitant]
     Active Substance: CHOLECALCIFEROL
     Indication: PRODUCT USED FOR UNKNOWN INDICATION
  6. REMICADE [Suspect]
     Active Substance: INFLIXIMAB
     Indication: CROHN^S DISEASE
     Dosage: 300 MG, UNK (DOSAGE FORM: LYOPHILIZED POWDER)
     Route: 042
     Dates: start: 20160211
  7. VITA B12 [Concomitant]
     Indication: VITAMIN B12 DEFICIENCY
  8. REMICADE [Suspect]
     Active Substance: INFLIXIMAB
     Dosage: UNK (DOSAGE FORM: LYOPHILIZED POWDER)
     Route: 042
     Dates: start: 20170310, end: 20170310
  9. PANTOZOL [Concomitant]
     Active Substance: PANTOPRAZOLE SODIUM
     Indication: ABDOMINAL PAIN
  10. DEKRISTOL [Concomitant]
     Active Substance: CHOLECALCIFEROL
     Indication: CROHN^S DISEASE
  11. NOVALGIN (CAFFEINE\PARACETAMOL\PROPYPHENAZONE) [Concomitant]
     Active Substance: ACETAMINOPHEN\CAFFEINE\PROPYPHENAZONE
     Indication: PAIN
  12. BUDENOFALK [Suspect]
     Active Substance: BUDESONIDE
     Indication: PYLORIC STENOSIS
     Dosage: DOSAGE FORM: UNSPECIFIED
     Route: 065
  13. SALOFALK GR [Concomitant]
     Indication: CROHN^S DISEASE
  14. 476 (MESALAZINE/MESALAMINE) [Suspect]
     Active Substance: MESALAMINE
     Indication: PYLORIC STENOSIS
     Dosage: UNK
     Route: 065
  15. AZATHIOPRINE. [Suspect]
     Active Substance: AZATHIOPRINE
     Dosage: DOSAGE FORM: UNSPECIFIED
     Route: 065
  16. REMICADE [Suspect]
     Active Substance: INFLIXIMAB
     Dosage: 300 MG, UNK (DOSAGE FORM: LYOPHILIZED POWDER, ALSO REPORTED AS 100 MG)
     Route: 042
     Dates: start: 201608
  17. REMICADE [Suspect]
     Active Substance: INFLIXIMAB
     Dosage: 300 MG, UNK (DOSAGE FORM: LYOPHILIZED POWDER)
     Route: 042
     Dates: start: 20161216
  18. PANTOZOL [Concomitant]
     Active Substance: PANTOPRAZOLE SODIUM
     Indication: PROPHYLAXIS
  19. PANTOZOL [Concomitant]
     Active Substance: PANTOPRAZOLE SODIUM
     Indication: GASTROINTESTINAL DISORDER THERAPY

REACTIONS (11)
  - Depression [Recovered/Resolved]
  - Pyloric stenosis [Unknown]
  - Drug ineffective [Not Recovered/Not Resolved]
  - Gastrooesophageal sphincter insufficiency [Unknown]
  - Pancreatitis acute [Recovered/Resolved]
  - Product use issue [Unknown]
  - General physical health deterioration [Recovered/Resolved]
  - Gastrointestinal stoma complication [Unknown]
  - Iron deficiency [Unknown]
  - Crohn^s disease [Not Recovered/Not Resolved]
  - Off label use [Unknown]

NARRATIVE: CASE EVENT DATE: 201602
